FAERS Safety Report 22145619 (Version 2)
Quarter: 2023Q2

REPORT INFORMATION
  Report Type: Spontaneous
  Country: US (occurrence: US)
  Receive Date: 20230328
  Receipt Date: 20230424
  Transmission Date: 20230721
  Serious: No
  Sender: FDA-Public Use
  Company Number: US-009507513-2303USA008278

PATIENT
  Age: 57 Year
  Sex: Female

DRUGS (4)
  1. KEYTRUDA [Suspect]
     Active Substance: PEMBROLIZUMAB
     Indication: Breast cancer
     Dosage: UNK
     Route: 042
     Dates: start: 202205
  2. BENADRYL [Concomitant]
     Active Substance: DIPHENHYDRAMINE HYDROCHLORIDE
     Dosage: UNK
  3. PEPCID [Concomitant]
     Active Substance: FAMOTIDINE
     Dosage: UNK
  4. LISINOPRIL [Concomitant]
     Active Substance: LISINOPRIL
     Dosage: UNK

REACTIONS (12)
  - Weight decreased [Not Recovered/Not Resolved]
  - Hypersomnia [Not Recovered/Not Resolved]
  - Aphasia [Not Recovered/Not Resolved]
  - Ill-defined disorder [Not Recovered/Not Resolved]
  - Loss of personal independence in daily activities [Not Recovered/Not Resolved]
  - Nausea [Not Recovered/Not Resolved]
  - Decreased appetite [Not Recovered/Not Resolved]
  - Vomiting [Not Recovered/Not Resolved]
  - Fatigue [Not Recovered/Not Resolved]
  - Product prescribing issue [Unknown]
  - Incorrect dose administered [Unknown]
  - Product use issue [Unknown]

NARRATIVE: CASE EVENT DATE: 20220501
